FAERS Safety Report 18750047 (Version 6)
Quarter: 2023Q4

REPORT INFORMATION
  Report Type: Spontaneous
  Country: FR (occurrence: FR)
  Receive Date: 20210118
  Receipt Date: 20231117
  Transmission Date: 20240110
  Serious: Yes (Other)
  Sender: FDA-Public Use
  Company Number: FR-AMGEN-FRASP2021004987

PATIENT
  Age: 57 Year
  Sex: Female
  Weight: 50 kg

DRUGS (14)
  1. TRASTUZUMAB [Suspect]
     Active Substance: TRASTUZUMAB
     Indication: Breast cancer metastatic
     Dosage: 294 MILLIGRAM, CYCLICAL
     Route: 042
     Dates: start: 20200302
  2. PERTUZUMAB [Suspect]
     Active Substance: PERTUZUMAB
     Indication: Breast cancer metastatic
     Dosage: 420 MILLIGRAM, CYCLICAL
     Route: 041
     Dates: start: 20200302
  3. CIMETIDINE [Suspect]
     Active Substance: CIMETIDINE
     Indication: Prophylaxis of nausea and vomiting
     Dosage: 1000 MILLIGRAM, CYCLICAL
     Route: 048
  4. CETIRIZINE [Suspect]
     Active Substance: CETIRIZINE HYDROCHLORIDE
     Indication: Prophylaxis of nausea and vomiting
     Dosage: 10 MILLIGRAM, CYCLICAL
     Route: 048
  5. PACLITAXEL [Suspect]
     Active Substance: PACLITAXEL
     Indication: Breast cancer metastatic
     Dosage: 114 MILLIGRAM, CYCLICAL
     Route: 041
     Dates: start: 20200309, end: 20200825
  6. CAPECITABINE [Suspect]
     Active Substance: CAPECITABINE
     Indication: Breast cancer metastatic
     Dosage: 10000 MILLIGRAM, QWK
     Route: 048
     Dates: start: 2019, end: 20200908
  7. TOUJEO [Suspect]
     Active Substance: INSULIN GLARGINE
     Indication: Insulin-requiring type 2 diabetes mellitus
     Dosage: 12 INTERNATIONAL UNIT, QD
     Route: 058
  8. PREDNISOLONE [Suspect]
     Active Substance: PREDNISOLONE
     Indication: Prophylaxis of nausea and vomiting
     Dosage: 40 MILLIGRAM, CYCLICAL
     Route: 048
  9. SKENAN [Suspect]
     Active Substance: MORPHINE SULFATE
     Indication: Pain
     Dosage: 1 DOSAGE FORM (30 MG, MICROGRANULES), QD, 1-0-2
     Route: 048
  10. OMEPRAZOLE [Suspect]
     Active Substance: OMEPRAZOLE
     Indication: Gastrooesophageal reflux disease
     Dosage: 20 MILLIGRAM, QD
     Route: 048
  11. MORPHINE SULFATE [Suspect]
     Active Substance: MORPHINE SULFATE
     Indication: Pain
     Dosage: 5 MILLIGRAM, QD
     Route: 048
  12. MORPHINE SULFATE [Suspect]
     Active Substance: MORPHINE SULFATE
     Dosage: 1 DOSAGE FORM, QD
     Route: 048
  13. INSULIN GLARGINE [Suspect]
     Active Substance: INSULIN GLARGINE
     Indication: Insulin-requiring type 2 diabetes mellitus
     Route: 058
  14. MORPHINE [Suspect]
     Active Substance: MORPHINE
     Indication: Pain
     Route: 065

REACTIONS (3)
  - Visual acuity reduced [Recovered/Resolved]
  - Keratitis [Recovered/Resolved]
  - Off label use [Unknown]

NARRATIVE: CASE EVENT DATE: 20200302
